FAERS Safety Report 21932274 (Version 1)
Quarter: 2023Q1

REPORT INFORMATION
  Report Type: Spontaneous
  Country: US (occurrence: None)
  Receive Date: 20230131
  Receipt Date: 20230131
  Transmission Date: 20230418
  Serious: No
  Sender: FDA-Public Use
  Company Number: None

PATIENT
  Age: 56 Year
  Sex: Male
  Weight: 58.97 kg

DRUGS (1)
  1. ATORVASTATIN [Suspect]
     Active Substance: ATORVASTATIN
     Indication: Hyperlipidaemia
     Dosage: FREQUENCY : DAILY;?
     Route: 048
     Dates: start: 20211112, end: 20220708

REACTIONS (7)
  - Rhabdomyolysis [None]
  - Suicidal ideation [None]
  - Depressed mood [None]
  - Pain in extremity [None]
  - Chronic kidney disease [None]
  - Disease progression [None]
  - Necrotising myositis [None]

NARRATIVE: CASE EVENT DATE: 20220626
